FAERS Safety Report 7001324-4 (Version None)
Quarter: 2010Q3

REPORT INFORMATION
  Report Type: 
  Country: None (occurrence: None)
  Receive Date: 20100920
  Receipt Date: 20091105
  Transmission Date: 20110219
  Serious: No
  Sender: FDA-Public Use
  Company Number: US-ASTRAZENECA-2009SE25260

PATIENT
  Age: 44 Year
  Sex: Female

DRUGS (4)
  1. SEROQUEL [Suspect]
     Route: 048
     Dates: start: 20090101
  2. IBUPROPHEN [Concomitant]
     Dosage: AS NEEDED
  3. LAMICTAL [Concomitant]
  4. EFFEXOR XR [Concomitant]

REACTIONS (1)
  - DRUG ABUSE [None]
